FAERS Safety Report 17931474 (Version 1)
Quarter: 2020Q2

REPORT INFORMATION
  Report Type: Spontaneous
  Country: US (occurrence: US)
  Receive Date: 20200623
  Receipt Date: 20200623
  Transmission Date: 20200714
  Serious: No
  Sender: FDA-Public Use
  Company Number: US-EMD SERONO-E2B_90078075

PATIENT
  Sex: Female

DRUGS (1)
  1. MAVENCLAD [Suspect]
     Active Substance: CLADRIBINE
     Indication: MULTIPLE SCLEROSIS
     Dosage: FIRST COURSE FIRST CYCLE THERAPY
     Dates: start: 20200518

REACTIONS (2)
  - White blood cell count decreased [Unknown]
  - Ill-defined disorder [Unknown]
